FAERS Safety Report 5237903-4 (Version None)
Quarter: 2007Q1

REPORT INFORMATION
  Report Type: 
  Country: None (occurrence: None)
  Receive Date: 20070214
  Receipt Date: 20070205
  Transmission Date: 20070707
  Serious: Yes (Hospitalization)
  Sender: FDA-Public Use
  Company Number: US-ABBOTT-07P-163-0357420-00

PATIENT
  Sex: Female
  Weight: 68.1 kg

DRUGS (15)
  1. HUMIRA [Suspect]
     Indication: RHEUMATOID ARTHRITIS
     Route: 058
     Dates: start: 20050101, end: 20061201
  2. ACETYLSALICYLIC ACID SRT [Concomitant]
     Indication: DRUG USE FOR UNKNOWN INDICATION
  3. CLOPIDOGREL BISULFATE [Concomitant]
     Indication: DRUG USE FOR UNKNOWN INDICATION
  4. DIFLUNISAL [Concomitant]
     Indication: DRUG USE FOR UNKNOWN INDICATION
  5. LEVOTHYROXINE SODIUM [Concomitant]
     Indication: DRUG USE FOR UNKNOWN INDICATION
  6. ATENOLOL [Concomitant]
     Indication: DRUG USE FOR UNKNOWN INDICATION
  7. LANSOPRAZOLE [Concomitant]
     Indication: DRUG USE FOR UNKNOWN INDICATION
  8. FUROSEMIDE [Concomitant]
     Indication: DRUG USE FOR UNKNOWN INDICATION
  9. ALPRAZOLAM [Concomitant]
     Indication: DRUG USE FOR UNKNOWN INDICATION
  10. BENICAR [Concomitant]
     Indication: DRUG USE FOR UNKNOWN INDICATION
  11. NISOLDIPINE [Concomitant]
     Indication: DRUG USE FOR UNKNOWN INDICATION
  12. VITAMIN CAP [Concomitant]
     Indication: DRUG USE FOR UNKNOWN INDICATION
  13. CALCIUM [Concomitant]
     Indication: DRUG USE FOR UNKNOWN INDICATION
  14. ADVAIR DISKUS 100/50 [Concomitant]
     Indication: DRUG USE FOR UNKNOWN INDICATION
  15. ALENDRONATE SODIUM [Concomitant]
     Indication: DRUG USE FOR UNKNOWN INDICATION

REACTIONS (3)
  - CEREBROVASCULAR ACCIDENT [None]
  - DYSARTHRIA [None]
  - HYPOAESTHESIA [None]
